FAERS Safety Report 9651007 (Version 3)
Quarter: 2014Q1

REPORT INFORMATION
  Report Type: Spontaneous
  Country: IE (occurrence: IE)
  Receive Date: 20131029
  Receipt Date: 20140319
  Transmission Date: 20141002
  Serious: Yes (Death, Hospitalization, Disabling, Other)
  Sender: FDA-Public Use
  Company Number: IE-009507513-1310IRL012402

PATIENT
  Age: 58 Year
  Sex: Male
  Weight: 91 kg

DRUGS (4)
  1. VICTRELIS [Suspect]
     Indication: HEPATITIS C
     Dosage: 800 MG, TDS
     Route: 048
     Dates: start: 20130219, end: 20131218
  2. PEGINTERFERON ALFA-2B [Suspect]
     Indication: HEPATITIS C
     Dosage: 180 MCG/ WEEK
     Dates: start: 20130122, end: 20131018
  3. RIBAVIRIN [Suspect]
     Indication: HEPATITIS C
     Dosage: 1200 MG, DAILY
     Route: 048
     Dates: start: 20130122, end: 20131018
  4. EPOETIN [Concomitant]
     Indication: ANAEMIA
     Dosage: 30000 IU/ WEEK
     Dates: start: 20130430, end: 20131018

REACTIONS (2)
  - Sudden death [Fatal]
  - Cerebrovascular accident [Not Recovered/Not Resolved]
